FAERS Safety Report 8216702-5 (Version None)
Quarter: 2012Q1

REPORT INFORMATION
  Report Type: 
  Country: None (occurrence: None)
  Receive Date: 20120316
  Receipt Date: 20120309
  Transmission Date: 20120608
  Serious: Yes (Hospitalization)
  Sender: FDA-Public Use
  Company Number: US-ACTELION-A-US2008-19947

PATIENT

DRUGS (3)
  1. VENTAVIS [Suspect]
     Indication: PULMONARY ARTERIAL HYPERTENSION
     Route: 055
     Dates: start: 20080821
  2. TRACLEER [Suspect]
     Indication: PULMONARY ARTERIAL HYPERTENSION
     Route: 048
     Dates: start: 20080314
  3. OXYGEN [Concomitant]

REACTIONS (13)
  - HEADACHE [None]
  - DYSPNOEA [None]
  - TACHYCARDIA [None]
  - FATIGUE [None]
  - VISION BLURRED [None]
  - CATHETERISATION CARDIAC [None]
  - HEART RATE DECREASED [None]
  - CHEST PAIN [None]
  - DIZZINESS [None]
  - ATRIAL FLUTTER [None]
  - HEART RATE IRREGULAR [None]
  - INSOMNIA [None]
  - OEDEMA PERIPHERAL [None]
